FAERS Safety Report 5039319-2 (Version None)
Quarter: 2006Q2

REPORT INFORMATION
  Report Type: 
  Country: None (occurrence: None)
  Receive Date: 20060629
  Receipt Date: 20051229
  Transmission Date: 20061013
  Serious: Yes (Other)
  Sender: FDA-Public Use
  Company Number: DE-JNJFOC-20051201074

PATIENT
  Sex: Female
  Weight: 56 kg

DRUGS (2)
  1. REMINYL [Suspect]
     Indication: DEMENTIA
     Route: 048
  2. NIFEDIPINE [Concomitant]
     Indication: HYPERTONIA
     Route: 065

REACTIONS (3)
  - GAIT DISTURBANCE [None]
  - SPEECH DISORDER [None]
  - TRANSIENT ISCHAEMIC ATTACK [None]
